FAERS Safety Report 5027028-5 (Version None)
Quarter: 2006Q2

REPORT INFORMATION
  Report Type: 
  Country: None (occurrence: None)
  Receive Date: 20060609
  Receipt Date: 20060530
  Transmission Date: 20061013
  Serious: Yes (Other)
  Sender: FDA-Public Use
  Company Number: 2006071332

PATIENT
  Age: 83 Year
  Sex: Male

DRUGS (1)
  1. NEURONTIN [Suspect]
     Indication: POLYNEUROPATHY
     Dosage: 900 MG (300 MG, 3 IN 1 D), ORAL
     Route: 048
     Dates: start: 20060401, end: 20060501

REACTIONS (4)
  - BRADYCARDIA [None]
  - CONDITION AGGRAVATED [None]
  - GAIT DISTURBANCE [None]
  - SOMNOLENCE [None]
